FAERS Safety Report 4503159-0 (Version None)
Quarter: 2004Q4

REPORT INFORMATION
  Report Type: 
  Country: None (occurrence: None)
  Receive Date: 20041117
  Receipt Date: 20041001
  Transmission Date: 20050328
  Serious: Yes (Hospitalization)
  Sender: FDA-Public Use
  Company Number: JP-MERCK-0410USA00813

PATIENT
  Age: 6 Year
  Sex: Male
  Weight: 18 kg

DRUGS (10)
  1. PERIACTIN [Suspect]
     Indication: RHINORRHOEA
     Route: 048
     Dates: start: 20040927, end: 20040929
  2. LEBENIN [Concomitant]
     Route: 048
     Dates: start: 20040927
  3. ASVERIN [Concomitant]
     Indication: COUGH
     Route: 048
     Dates: start: 20040927, end: 20040929
  4. MUCODYNE [Concomitant]
     Indication: SPUTUM RETENTION
     Route: 048
     Dates: start: 20040927, end: 20040929
  5. CEFZON [Concomitant]
     Indication: INFECTION
     Route: 048
     Dates: start: 20040926, end: 20040927
  6. [THERAPY UNSPECIFIED] [Concomitant]
     Indication: ABDOMINAL SYMPTOM
     Route: 048
     Dates: start: 20040926, end: 20040927
  7. ALUMINUM SILICATE [Concomitant]
     Indication: DIARRHOEA
     Route: 048
     Dates: start: 20040926, end: 20040927
  8. CALCIUM LACTATE [Concomitant]
     Indication: DIARRHOEA
     Route: 048
     Dates: start: 20040926, end: 20040927
  9. ACETAMINOPHEN [Concomitant]
     Indication: ANTIPYRESIS
     Route: 048
     Dates: start: 20040926, end: 20040927
  10. MEIACT [Concomitant]
     Indication: INFECTION
     Route: 048
     Dates: start: 20040927, end: 20040929

REACTIONS (6)
  - ATAXIA [None]
  - DELIRIUM [None]
  - DEPRESSED LEVEL OF CONSCIOUSNESS [None]
  - FALL [None]
  - MALAISE [None]
  - PYREXIA [None]
